FAERS Safety Report 9924512 (Version 2)
Quarter: 2014Q2

REPORT INFORMATION
  Report Type: Spontaneous
  Country: GB (occurrence: None)
  Receive Date: 20140220
  Receipt Date: 20140402
  Transmission Date: 20141212
  Serious: Yes (Hospitalization)
  Sender: FDA-Public Use
  Company Number: AUR-APL-2014-01565

PATIENT
  Age: 86 Year
  Sex: Female

DRUGS (8)
  1. FLUCONAZOLE (FLUCONAZOLE) [Suspect]
     Indication: ORAL CANDIDIASIS
     Dosage: 25MG (25MG, 1 IN 1D) ORAL
     Route: 048
     Dates: start: 20140114, end: 20140115
  2. ADALAT LA (NIFEDIPINE) [Concomitant]
  3. BENDROFLUMETHIAZIDE (BENDROFLUMETHIAZIDE) [Concomitant]
  4. CLENIL MODULITE (BECLOMETASONE DIPROPIONATE) [Concomitant]
  5. DOXAZOSIN (DOXAZOSIN) [Concomitant]
  6. IRBESARTAN (IRBESARTAN) [Concomitant]
  7. METFORMIN (METFORMIN) [Concomitant]
  8. SALBUTAMOL (SALBUTAMOL) [Concomitant]

REACTIONS (3)
  - Rash erythematous [None]
  - Rash macular [None]
  - Rash pruritic [None]
